FAERS Safety Report 4733388-2 (Version None)
Quarter: 2005Q3

REPORT INFORMATION
  Report Type: 
  Country: None (occurrence: None)
  Receive Date: 20050801
  Receipt Date: 20050801
  Transmission Date: 20060218
  Serious: Yes (Hospitalization)
  Sender: FDA-Public Use
  Company Number: None

PATIENT
  Age: 55 Year
  Sex: Male

DRUGS (10)
  1. FUROSEMIDE [Suspect]
     Indication: HYPERTENSION
     Dosage: 40 MG QD
     Dates: start: 20040105
  2. BUPROPION [Concomitant]
  3. ZOLOFT [Concomitant]
  4. BUSPIRONE [Concomitant]
  5. B12 [Concomitant]
  6. MG OXIDE [Concomitant]
  7. CABAPENTIN [Concomitant]
  8. ZOCOR [Concomitant]
  9. FOLIC ACID [Concomitant]
  10. GEMFIBROZIL [Concomitant]

REACTIONS (1)
  - RENAL FAILURE ACUTE [None]
